FAERS Safety Report 5705022-6 (Version None)
Quarter: 2008Q2

REPORT INFORMATION
  Report Type: 
  Country: None (occurrence: None)
  Receive Date: 20080414
  Receipt Date: 20080403
  Transmission Date: 20081010
  Serious: Yes (Other)
  Sender: FDA-Public Use
  Company Number: JP-PFIZER INC-2008030040

PATIENT
  Age: 86 Year
  Sex: Female

DRUGS (5)
  1. UNASYN [Suspect]
     Indication: PNEUMONIA MYCOPLASMAL
     Route: 042
     Dates: start: 20080319, end: 20080322
  2. ZITHROMAX [Suspect]
     Indication: PNEUMONIA MYCOPLASMAL
     Dosage: DAILY DOSE:250MG
     Route: 048
     Dates: start: 20080319, end: 20080321
  3. BISOLVON [Concomitant]
     Route: 048
  4. ONON [Concomitant]
     Route: 048
  5. MEDICON [Concomitant]
     Route: 048

REACTIONS (1)
  - TOXIC EPIDERMAL NECROLYSIS [None]
